FAERS Safety Report 18733799 (Version 1)
Quarter: 2021Q1

REPORT INFORMATION
  Report Type: Spontaneous
  Country: NL (occurrence: NL)
  Receive Date: 20210113
  Receipt Date: 20210113
  Transmission Date: 20210419
  Serious: Yes (Death, Hospitalization, Other)
  Sender: FDA-Public Use
  Company Number: NL-ALKEM LABORATORIES LIMITED-NL-ALKEM-2020-06837

PATIENT
  Age: 64 Year
  Sex: Female

DRUGS (1)
  1. DIMETHYLFUMARATE [Suspect]
     Active Substance: DIMETHYL FUMARATE
     Indication: PSORIASIS
     Dosage: UNK
     Route: 065
     Dates: start: 201406

REACTIONS (2)
  - Progressive multifocal leukoencephalopathy [Fatal]
  - Lymphopenia [Unknown]
